FAERS Safety Report 24198249 (Version 2)
Quarter: 2024Q3

REPORT INFORMATION
  Report Type: Spontaneous
  Country: US (occurrence: US)
  Receive Date: 20240812
  Receipt Date: 20240902
  Transmission Date: 20241016
  Serious: No
  Sender: ASTELLAS
  Company Number: US-ASTELLAS-2024US015682

PATIENT
  Age: 58 Year
  Sex: Female

DRUGS (1)
  1. VEOZAH [Suspect]
     Active Substance: FEZOLINETANT
     Indication: Product used for unknown indication
     Dosage: 45 MG, ONCE DAILY
     Route: 065
     Dates: start: 202405

REACTIONS (1)
  - Insomnia [Unknown]
